FAERS Safety Report 5754959-0 (Version None)
Quarter: 2008Q2

REPORT INFORMATION
  Report Type: 
  Country: None (occurrence: None)
  Receive Date: 20080528
  Receipt Date: 20080528
  Transmission Date: 20081010
  Serious: Yes (Hospitalization)
  Sender: FDA-Public Use
  Company Number: None

PATIENT
  Sex: Female
  Weight: 53.6 kg

DRUGS (4)
  1. TEMOZOLOMIDE [Suspect]
     Indication: ACUTE MYELOID LEUKAEMIA
     Dosage: 100 MG/M2 (160 MG) QD PO
     Route: 048
     Dates: start: 20080430, end: 20080513
  2. TEMOZOLOMIDE [Suspect]
     Indication: ACUTE MYELOID LEUKAEMIA
     Dosage: 200 MG/M2  (320 MG)  QD  PO
     Route: 048
     Dates: start: 20080514, end: 20080520
  3. LISINOPRIL [Concomitant]
  4. CIPRO/FLAGYL [Concomitant]

REACTIONS (8)
  - ABDOMINAL PAIN LOWER [None]
  - NAUSEA [None]
  - NIGHT SWEATS [None]
  - PETECHIAE [None]
  - PLATELET COUNT DECREASED [None]
  - PYREXIA [None]
  - RASH MACULO-PAPULAR [None]
  - VOMITING [None]
